FAERS Safety Report 23779090 (Version 1)
Quarter: 2024Q2

REPORT INFORMATION
  Report Type: Spontaneous
  Country: NL (occurrence: NL)
  Receive Date: 20240424
  Receipt Date: 20240424
  Transmission Date: 20240716
  Serious: Yes (Hospitalization)
  Sender: FDA-Public Use
  Company Number: None

PATIENT
  Age: 34 Year
  Sex: Female
  Weight: 69 kg

DRUGS (2)
  1. TRAMADOL [Interacting]
     Active Substance: TRAMADOL\TRAMADOL HYDROCHLORIDE
     Indication: Pain
     Dosage: IF NECESSARY, 1 PIECE 1-3 TIMES A DAY,TRAMADOL  / BRAND NAME NOT SPECIFIED
     Route: 065
     Dates: start: 20210530, end: 20240214
  2. DULOXETINE [Interacting]
     Active Substance: DULOXETINE
     Indication: Neuralgia
     Dosage: 1 PIECE ONCE PER DAY,DULOXETINE  MSR / BRAND NAME NOT SPECIFIED
     Route: 065
     Dates: start: 20230710, end: 20240214

REACTIONS (2)
  - Drug interaction [Recovered/Resolved]
  - Serotonin syndrome [Recovered/Resolved]
